FAERS Safety Report 10736141 (Version 1)
Quarter: 2015Q1

REPORT INFORMATION
  Report Type: Spontaneous
  Country: BR (occurrence: BR)
  Receive Date: 20150126
  Receipt Date: 20150126
  Transmission Date: 20150721
  Serious: Yes (Other)
  Sender: FDA-Public Use
  Company Number: BR-ELI_LILLY_AND_COMPANY-BR201501005118

PATIENT
  Age: 8 Year
  Sex: Female
  Weight: 33 kg

DRUGS (2)
  1. HUMULIN N [Suspect]
     Active Substance: INSULIN HUMAN
     Indication: TYPE 1 DIABETES MELLITUS
     Dosage: 10 IU, EACH MORNING
     Route: 058
     Dates: start: 20150104
  2. HUMULIN N [Suspect]
     Active Substance: INSULIN HUMAN
     Dosage: 4 IU, EACH EVENING
     Route: 058
     Dates: start: 20150104

REACTIONS (1)
  - Hyperglycaemia [Recovered/Resolved]

NARRATIVE: CASE EVENT DATE: 20150105
